FAERS Safety Report 9282638 (Version 2)
Quarter: 2013Q4

REPORT INFORMATION
  Report Type: Spontaneous
  Country: IT (occurrence: IT)
  Receive Date: 20130510
  Receipt Date: 20131023
  Transmission Date: 20140711
  Serious: Yes (Other)
  Sender: FDA-Public Use
  Company Number: IT-BRISTOL-MYERS SQUIBB COMPANY-18885442

PATIENT
  Age: 49 Year
  Sex: Female

DRUGS (3)
  1. ERBITUX SOLN FOR INF [Suspect]
     Indication: RECTAL CANCER
     Dosage: ONGOING.
     Route: 042
     Dates: start: 20120712
  2. 5-FLUOROURACIL [Suspect]
     Indication: RECTAL CANCER
     Dosage: ONGOING.
     Route: 042
     Dates: start: 20120712
  3. CAMPTO [Suspect]
     Indication: RECTAL CANCER
     Dosage: ONGOING.
     Route: 042
     Dates: start: 20120712

REACTIONS (1)
  - Vaginal haemorrhage [Unknown]
